FAERS Safety Report 7817619-8 (Version None)
Quarter: 2011Q4

REPORT INFORMATION
  Report Type: 
  Country: None (occurrence: None)
  Receive Date: 20111017
  Receipt Date: 20111012
  Transmission Date: 20120403
  Serious: Yes (Death, Hospitalization)
  Sender: FDA-Public Use
  Company Number: PHHO2011DE06158

PATIENT
  Sex: Female
  Weight: 79 kg

DRUGS (11)
  1. SIMVAR [Concomitant]
  2. LYRICA [Concomitant]
  3. LAXOBERAL [Concomitant]
  4. FTY [Suspect]
     Indication: MULTIPLE SCLEROSIS
     Dosage: 0.5 MG, QD
     Route: 048
     Dates: start: 20110204, end: 20110402
  5. LOSARTAN POTASSIUM [Concomitant]
  6. PK-MERZ [Concomitant]
  7. METHYLPREDNISOLONE [Concomitant]
  8. MIRTAZAPINE [Concomitant]
  9. SIMVASTATIN [Concomitant]
  10. LEVOTHYROXINE SODIUM [Concomitant]
  11. NEURONTIN [Concomitant]

REACTIONS (6)
  - FALL [None]
  - MYOCARDIAL INFARCTION [None]
  - LYMPHOCYTE COUNT DECREASED [None]
  - BLISTER [None]
  - ARTERIOSCLEROSIS CORONARY ARTERY [None]
  - CORONARY ARTERY DISSECTION [None]
